FAERS Safety Report 9166527 (Version 4)
Quarter: 2014Q1

REPORT INFORMATION
  Report Type: Spontaneous
  Country: US (occurrence: US)
  Receive Date: 20130315
  Receipt Date: 20140312
  Transmission Date: 20141002
  Serious: No
  Sender: FDA-Public Use
  Company Number: US-009507513-1303USA006765

PATIENT
  Sex: Male

DRUGS (2)
  1. PROPECIA [Suspect]
     Indication: ALOPECIA
     Dosage: 1 MG, QD
     Route: 048
     Dates: end: 20081121
  2. PROPECIA [Suspect]
     Dosage: 1 MG, QD
     Route: 048
     Dates: start: 20090107, end: 2012

REACTIONS (18)
  - Cognitive disorder [Not Recovered/Not Resolved]
  - Premature ejaculation [Unknown]
  - Terminal dribbling [Unknown]
  - Hypogonadism male [Unknown]
  - Abnormal weight gain [Unknown]
  - Androgen deficiency [Unknown]
  - Androgens abnormal [Unknown]
  - Oesophageal stenosis [Unknown]
  - Insulin resistance [Unknown]
  - Oestradiol increased [Recovered/Resolved]
  - Blood cholesterol increased [Unknown]
  - Insulin-like growth factor decreased [Unknown]
  - Hirsutism [Unknown]
  - Sexual dysfunction [Not Recovered/Not Resolved]
  - Sexual dysfunction [Unknown]
  - Erectile dysfunction [Unknown]
  - Libido decreased [Unknown]
  - Gynaecomastia [Not Recovered/Not Resolved]
